FAERS Safety Report 24041731 (Version 1)
Quarter: 2024Q3

REPORT INFORMATION
  Report Type: Spontaneous
  Country: US (occurrence: None)
  Receive Date: 20240701
  Receipt Date: 20240701
  Transmission Date: 20241017
  Serious: Yes (Other)
  Sender: Public
  Company Number: None

PATIENT
  Age: 71 Year
  Sex: Female
  Weight: 81.45 kg

DRUGS (1)
  1. SAXENDA [Suspect]
     Active Substance: LIRAGLUTIDE
     Indication: Glucose tolerance impaired

REACTIONS (3)
  - Hypotension [None]
  - Syncope [None]
  - Fatigue [None]

NARRATIVE: CASE EVENT DATE: 20240617
